FAERS Safety Report 4608872-2 (Version None)
Quarter: 2005Q1

REPORT INFORMATION
  Report Type: 
  Country: None (occurrence: None)
  Receive Date: 20050311
  Receipt Date: 20050301
  Transmission Date: 20050727
  Serious: Yes (Hospitalization)
  Sender: FDA-Public Use
  Company Number: 2005039653

PATIENT
  Age: 70 Year
  Sex: Male
  Weight: 93 kg

DRUGS (6)
  1. SORTIS (ATORVASTATIN) [Suspect]
     Indication: CORONARY ARTERY DISEASE
     Dosage: 40 MG (40 MG, 1 IN 1 D), ORAL MORE THAN ONE YEAR
     Route: 048
     Dates: end: 20041021
  2. SORTIS (ATORVASTATIN) [Suspect]
     Indication: HYPERLIPIDAEMIA
     Dosage: 40 MG (40 MG, 1 IN 1 D), ORAL MORE THAN ONE YEAR
     Route: 048
     Dates: end: 20041021
  3. CYPROTERONE ACETATE (CYPROTERONE ACETATE) [Suspect]
     Indication: PROSTATE CANCER
     Dosage: ORAL; INTRAMUSCULAR,    FEW WEEKS
     Dates: end: 20041021
  4. EZETIMIBE (EZETIMIBE) [Suspect]
     Indication: HYPERLIPIDAEMIA
     Dosage: ORAL,     FOR MONTHS
     Route: 048
     Dates: end: 20041021
  5. PHENPROCOUMON (PHENPROCOUMON) [Concomitant]
  6. LEVOTHYROXINE SODIUM [Concomitant]

REACTIONS (5)
  - DRUG INTERACTION [None]
  - PROSTATIC SPECIFIC ANTIGEN INCREASED [None]
  - RENAL FAILURE [None]
  - RHABDOMYOLYSIS [None]
  - TRANSAMINASES INCREASED [None]
